FAERS Safety Report 21660113 (Version 1)
Quarter: 2022Q4

REPORT INFORMATION
  Report Type: Spontaneous
  Country: CN (occurrence: None)
  Receive Date: 20221130
  Receipt Date: 20221130
  Transmission Date: 20230112
  Serious: Yes (Other)
  Sender: FDA-Public Use
  Company Number: CN-ROCHE-3227535

PATIENT
  Age: 59 Year
  Sex: Male

DRUGS (32)
  1. MABTHERA [Suspect]
     Active Substance: RITUXIMAB
     Indication: Chronic lymphocytic leukaemia
     Dosage: FR
     Route: 065
     Dates: start: 20210308
  2. MABTHERA [Suspect]
     Active Substance: RITUXIMAB
     Dosage: R
     Route: 065
     Dates: start: 20220624
  3. GAZYVA [Suspect]
     Active Substance: OBINUTUZUMAB
     Indication: Chronic lymphocytic leukaemia
     Dosage: OBINUTUZUMAB + VENETOCLAX TABLETS
     Route: 042
     Dates: start: 20220103
  4. GAZYVA [Suspect]
     Active Substance: OBINUTUZUMAB
     Dosage: OBINUTUZUMAB AND VENETOCLAX
     Route: 042
     Dates: start: 20220830
  5. GAZYVA [Suspect]
     Active Substance: OBINUTUZUMAB
     Dosage: OBINUTUZUMAB AND BENDAMUSTINE
     Route: 042
     Dates: start: 20220915
  6. GAZYVA [Suspect]
     Active Substance: OBINUTUZUMAB
     Dosage: OBINUTUZUMAB AND VENETOCLAX
     Route: 042
     Dates: start: 20221009
  7. HYDROXYUREA [Concomitant]
     Active Substance: HYDROXYUREA
     Indication: Chronic lymphocytic leukaemia
     Route: 048
  8. FLUDARABINE PHOSPHATE [Concomitant]
     Active Substance: FLUDARABINE PHOSPHATE
     Indication: Chronic lymphocytic leukaemia
     Dosage: RF
     Dates: start: 20210308
  9. ZANUBRUTINIB [Concomitant]
     Active Substance: ZANUBRUTINIB
     Indication: Chronic lymphocytic leukaemia
     Route: 048
     Dates: start: 20210312
  10. VENETOCLAX [Concomitant]
     Active Substance: VENETOCLAX
     Indication: Chronic lymphocytic leukaemia
     Dosage: OBINUTUZUMAB + VENETOCLAX TABLETS
     Route: 065
     Dates: start: 20220103
  11. VENETOCLAX [Concomitant]
     Active Substance: VENETOCLAX
     Dosage: LENALIDOMID + VENETOCLAX
     Route: 048
     Dates: start: 20220527
  12. VENETOCLAX [Concomitant]
     Active Substance: VENETOCLAX
     Dosage: FLUDARABINE, DOXORUBICIN HYDROCHLORIDE LIPOSOME INJECTION, HORMONE, LENALIDOMIDE, VENETOCLAX
     Route: 065
     Dates: start: 20220530
  13. VENETOCLAX [Concomitant]
     Active Substance: VENETOCLAX
     Dosage: VENETOCLAX TABLETS + LENALIDOMID + METHOTREXATE + CYTARABINE + EPOCH
     Route: 065
     Dates: start: 20220629
  14. VENETOCLAX [Concomitant]
     Active Substance: VENETOCLAX
     Dosage: OBINUTUZUMAB AND VENETOCLAX
     Route: 065
     Dates: start: 20220830
  15. VENETOCLAX [Concomitant]
     Active Substance: VENETOCLAX
     Dosage: OBINUTUZUMAB AND VENETOCLAX
     Route: 065
     Dates: start: 20221009
  16. LENALIDOMIDE [Concomitant]
     Active Substance: LENALIDOMIDE
     Indication: Chronic lymphocytic leukaemia
     Dosage: LENALIDOMID + VENETOCLAX
     Route: 048
     Dates: start: 20220527
  17. LENALIDOMIDE [Concomitant]
     Active Substance: LENALIDOMIDE
     Dosage: FLUDARABINE, DOXORUBICIN HYDROCHLORIDE LIPOSOME INJECTION, HORMONE, LENALIDOMIDE, VENETOCLAX
     Route: 065
     Dates: start: 20220530
  18. LENALIDOMIDE [Concomitant]
     Active Substance: LENALIDOMIDE
     Dosage: VENETOCLAX TABLETS + LENALIDOMID + METHOTREXATE + CYTARABINE + EPOCH
     Route: 065
     Dates: start: 20220629
  19. FLUDARABINE [Concomitant]
     Active Substance: FLUDARABINE PHOSPHATE
     Indication: Chronic lymphocytic leukaemia
     Dosage: FLUDARABINE, DOXORUBICIN HYDROCHLORIDE LIPOSOME INJECTION, HORMONE, LENALIDOMIDE, VENETOCLAX
     Route: 065
     Dates: start: 20220530
  20. DOXORUBICIN HYDROCHLORIDE [Concomitant]
     Active Substance: DOXORUBICIN HYDROCHLORIDE
     Indication: Chronic lymphocytic leukaemia
     Dosage: FLUDARABINE, DOXORUBICIN HYDROCHLORIDE LIPOSOME INJECTION, HORMONE, LENALIDOMIDE, VENETOCLAX
     Route: 065
     Dates: start: 20220530
  21. DOXORUBICIN HYDROCHLORIDE [Concomitant]
     Active Substance: DOXORUBICIN HYDROCHLORIDE
     Dosage: VENETOCLAX TABLETS + LENALIDOMID + METHOTREXATE + CYTARABINE + EPOCH
     Route: 065
     Dates: start: 20220629
  22. METHOTREXATE [Concomitant]
     Active Substance: METHOTREXATE
     Indication: Chronic lymphocytic leukaemia
     Dosage: METHOTREXATE + CYTARABINE + DEXAMETHASONE
     Route: 037
     Dates: start: 20220607
  23. METHOTREXATE [Concomitant]
     Active Substance: METHOTREXATE
     Dosage: VENETOCLAX TABLETS + LENALIDOMID + METHOTREXATE + CYTARABINE + EPOCH
     Route: 037
     Dates: start: 20220629
  24. CYTARABINE [Concomitant]
     Active Substance: CYTARABINE
     Indication: Chronic lymphocytic leukaemia
     Dosage: METHOTREXATE + CYTARABINE + DEXAMETHASONE
     Route: 037
     Dates: start: 20220607
  25. CYTARABINE [Concomitant]
     Active Substance: CYTARABINE
     Dosage: VENETOCLAX TABLETS + LENALIDOMID + METHOTREXATE + CYTARABINE + EPOCH
     Route: 037
     Dates: start: 20220629
  26. DEXAMETHASONE [Concomitant]
     Active Substance: DEXAMETHASONE
     Indication: Chronic lymphocytic leukaemia
     Dosage: METHOTREXATE + CYTARABINE + DEXAMETHASONE
     Route: 037
     Dates: start: 20220607
  27. ETOPOSIDE [Concomitant]
     Active Substance: ETOPOSIDE
     Indication: Chronic lymphocytic leukaemia
     Dosage: VENETOCLAX TABLETS + LENALIDOMID + METHOTREXATE + CYTARABINE + EPOCH
     Dates: start: 20220629
  28. PREDNISONE [Concomitant]
     Active Substance: PREDNISONE
     Indication: Chronic lymphocytic leukaemia
     Dosage: VENETOCLAX TABLETS + LENALIDOMID + METHOTREXATE + CYTARABINE + EPOCH
     Dates: start: 20220629
  29. VINCRISTINE [Concomitant]
     Active Substance: VINCRISTINE
     Indication: Chronic lymphocytic leukaemia
     Dosage: VENETOCLAX TABLETS + LENALIDOMID + METHOTREXATE + CYTARABINE + EPOCH
     Route: 065
     Dates: start: 20220629
  30. CYCLOPHOSPHAMIDE [Concomitant]
     Active Substance: CYCLOPHOSPHAMIDE
     Indication: Chronic lymphocytic leukaemia
     Dosage: VENETOCLAX TABLETS + LENALIDOMID + METHOTREXATE + CYTARABINE + EPOCH
     Route: 065
     Dates: start: 20220629
  31. BENDAMUSTINE [Concomitant]
     Active Substance: BENDAMUSTINE
     Indication: Chronic lymphocytic leukaemia
     Dosage: OBINUTUZUMAB AND BENDAMUSTINE
     Route: 065
     Dates: start: 20220915
  32. DUVELISIB [Concomitant]
     Active Substance: DUVELISIB
     Indication: Chronic lymphocytic leukaemia
     Dosage: REDUCED TO 1 TABLET
     Route: 065

REACTIONS (2)
  - Myelosuppression [Unknown]
  - Off label use [Unknown]
